FAERS Safety Report 15361481 (Version 1)
Quarter: 2018Q3

REPORT INFORMATION
  Report Type: Spontaneous
  Country: US (occurrence: US)
  Receive Date: 20180831
  Receipt Date: 20180831
  Transmission Date: 20181010
  Serious: No
  Sender: FDA-Public Use
  Company Number: None

PATIENT
  Age: 5 Month
  Sex: Male
  Weight: 8.1 kg

DRUGS (1)
  1. DESITIN RAPID RELIEF DIAPER RASH [Suspect]
     Active Substance: ZINC OXIDE
     Indication: RASH
     Route: 061
     Dates: start: 20180815, end: 20180830

REACTIONS (3)
  - Erythema [None]
  - Skin irritation [None]
  - Product contamination physical [None]

NARRATIVE: CASE EVENT DATE: 20180830
